FAERS Safety Report 5361801-9 (Version None)
Quarter: 2007Q2

REPORT INFORMATION
  Report Type: 
  Country: None (occurrence: None)
  Receive Date: 20070619
  Receipt Date: 20070607
  Transmission Date: 20071010
  Serious: Yes (Disabling)
  Sender: FDA-Public Use
  Company Number: GB-ELI_LILLY_AND_COMPANY-GB200706001448

PATIENT
  Age: 12 Year
  Sex: Male
  Weight: 46.6 kg

DRUGS (3)
  1. STRATTERA [Suspect]
     Indication: ATTENTION DEFICIT/HYPERACTIVITY DISORDER
     Dosage: 18 MG, UNK
     Route: 048
     Dates: start: 20070411
  2. STRATTERA [Suspect]
     Dosage: 40 MG, UNK
     Route: 048
     Dates: end: 20070510
  3. CONCERTA [Concomitant]
     Dosage: 36 MG, UNK
     Route: 048

REACTIONS (1)
  - AGGRESSION [None]
